FAERS Safety Report 16631377 (Version 3)
Quarter: 2019Q4

REPORT INFORMATION
  Report Type: Spontaneous
  Country: PL (occurrence: PL)
  Receive Date: 20190725
  Receipt Date: 20191212
  Transmission Date: 20200122
  Serious: Yes (Death, Life-Threatening, Disabling, Other)
  Sender: FDA-Public Use
  Company Number: PL-MYLANLABS-2019M1069748

PATIENT
  Age: 67 Year
  Sex: Female
  Weight: 70 kg

DRUGS (56)
  1. GLUCOSE [Suspect]
     Active Substance: DEXTROSE
     Dosage: 500 MILLILITER, Q3D
     Route: 042
     Dates: start: 20181117, end: 20181117
  2. GENSULIN R [Suspect]
     Active Substance: INSULIN HUMAN
     Indication: DIABETES MELLITUS
     Dosage: 12.5 INTERNATIONAL UNIT, QD
     Route: 042
     Dates: start: 20181116, end: 20181116
  3. GENSULIN R [Suspect]
     Active Substance: INSULIN HUMAN
     Dosage: 12.5 INTERNATIONAL UNIT, QD
     Route: 042
     Dates: start: 20181118, end: 20181118
  4. MORPHINE [Suspect]
     Active Substance: MORPHINE
     Indication: PRODUCT USED FOR UNKNOWN INDICATION
     Dosage: (60 MG+5 MG/H FOR 17 HOURS=145 MG/DAY)145 MILLIGRAM, QD
     Route: 042
     Dates: start: 20181124, end: 20181125
  5. VANCOMYCIN [Suspect]
     Active Substance: VANCOMYCIN
     Indication: CLOSTRIDIUM DIFFICILE INFECTION
     Dosage: 1.5 GRAM, QD
     Route: 048
     Dates: start: 20181027
  6. OXYNORM [Concomitant]
     Active Substance: OXYCODONE HYDROCHLORIDE
     Dosage: 2 MILLIGRAM, QH
     Route: 042
     Dates: start: 20181012, end: 20181018
  7. METOCARD ZK [Concomitant]
     Active Substance: METOPROLOL TARTRATE
     Dosage: 95 MILLIGRAM
     Route: 048
     Dates: start: 20181016, end: 20181115
  8. GLUCOSE [Suspect]
     Active Substance: DEXTROSE
     Dosage: 500 MILLILITER, Q2D
     Route: 042
     Dates: start: 20181118, end: 20181125
  9. IPP                                /01263204/ [Suspect]
     Active Substance: PANTOPRAZOLE SODIUM
     Dosage: 80 MILLIGRAM, QD
     Route: 042
     Dates: start: 20181116, end: 20181125
  10. MEMOTROPIL [Suspect]
     Active Substance: PIRACETAM
     Dosage: 2.4 GRAM, QD
     Route: 042
     Dates: start: 20181116, end: 20181125
  11. LEVONOR                            /00127502/ [Suspect]
     Active Substance: NOREPINEPHRINE BITARTRATE
     Indication: PRODUCT USED FOR UNKNOWN INDICATION
     Dosage: 1.4 MILLIGRAM, QH
     Route: 042
     Dates: start: 20181012, end: 20181016
  12. DEXAVEN [Suspect]
     Active Substance: DEXAMETHASONE
     Indication: PRODUCT USED FOR UNKNOWN INDICATION
     Dosage: 8 MILLIGRAM, QD
     Route: 042
     Dates: start: 20181122, end: 20181125
  13. VIREGYT-K [Concomitant]
     Dosage: 50 MILLIGRAM, QD
     Route: 048
     Dates: start: 20181024, end: 20181114
  14. VITACON                            /00032401/ [Concomitant]
     Dosage: 2G/200 ML
     Route: 042
     Dates: start: 20181117, end: 20181117
  15. AMANTIX [Concomitant]
     Dosage: 500 MILLILITER,(5H INFUSION)
     Route: 042
     Dates: start: 20181115, end: 20181117
  16. FUROSEMID                          /00032601/ [Concomitant]
     Active Substance: FUROSEMIDE
     Dosage: 40 MILLIGRAM, QD
     Route: 042
     Dates: start: 20181024, end: 20181101
  17. BETALOC                            /00376902/ [Concomitant]
     Active Substance: METOPROLOL TARTRATE
     Dosage: 20 MILLIGRAM, QD
     Route: 042
     Dates: start: 20181015, end: 20181015
  18. VANCOMYCIN [Suspect]
     Active Substance: VANCOMYCIN
     Indication: STAPHYLOCOCCAL INFECTION
  19. GENSULIN R [Suspect]
     Active Substance: INSULIN HUMAN
     Dosage: 25 INTERNATIONAL UNIT, QD
     Route: 042
     Dates: start: 20181121, end: 20181121
  20. HEPA-MERZ                          /01390204/ [Suspect]
     Active Substance: ORNITHINE ASPARTATE
     Indication: PRODUCT USED FOR UNKNOWN INDICATION
     Dosage: 20 MILLIGRAM, QD
     Route: 041
     Dates: start: 20181116, end: 20181125
  21. LEVONOR                            /00127502/ [Suspect]
     Active Substance: NOREPINEPHRINE BITARTRATE
     Dosage: 3.2 MILLIGRAM, QH
     Route: 042
     Dates: start: 20181118
  22. DIGOXIN. [Concomitant]
     Active Substance: DIGOXIN
     Dosage: 1 GRAM
     Route: 042
     Dates: start: 20181015, end: 20181015
  23. PARACETAMOL [Concomitant]
     Active Substance: ACETAMINOPHEN
     Dosage: 1 GRAM, QD
     Route: 042
     Dates: start: 20181015, end: 20181015
  24. PYRALGIN                           /03155201/ [Concomitant]
     Active Substance: METAMIZOLE\NIMESULIDE
     Dosage: DOSE: 2.5 MG/100 ML
     Route: 042
     Dates: start: 20181015
  25. VANCOMYCIN [Suspect]
     Active Substance: VANCOMYCIN
     Indication: KLEBSIELLA INFECTION
  26. GENSULIN R [Suspect]
     Active Substance: INSULIN HUMAN
     Dosage: 15 INTERNATIONAL UNIT, QD
     Route: 042
     Dates: start: 20181119, end: 20181119
  27. GENSULIN R [Suspect]
     Active Substance: INSULIN HUMAN
     Dosage: 24.5 INTERNATIONAL UNIT, QD
     Route: 042
     Dates: start: 20181120, end: 20181120
  28. GENSULIN R [Suspect]
     Active Substance: INSULIN HUMAN
     Dosage: 12.5 INTERNATIONAL UNIT, QD
     Route: 042
     Dates: start: 20181123, end: 20181123
  29. IPP                                /01263204/ [Suspect]
     Active Substance: PANTOPRAZOLE SODIUM
     Indication: PRODUCT USED FOR UNKNOWN INDICATION
     Dosage: 40 MILLIGRAM, QD
     Route: 042
     Dates: start: 20181015, end: 20181115
  30. IMIPENEM [Suspect]
     Active Substance: IMIPENEM
     Indication: NOSOCOMIAL INFECTION
     Dosage: UNK
     Route: 065
  31. LEVONOR                            /00127502/ [Suspect]
     Active Substance: NOREPINEPHRINE BITARTRATE
     Dosage: 2 MILLIGRAM, QH
     Route: 042
     Dates: start: 20181119
  32. CLEXANE [Suspect]
     Active Substance: ENOXAPARIN SODIUM
     Dosage: UNK
     Route: 042
     Dates: start: 20181015, end: 20181115
  33. GENSULIN R [Suspect]
     Active Substance: INSULIN HUMAN
     Dosage: 1 INTERNATIONAL UNIT, QH,BETWEEN 2,7
     Route: 042
     Dates: start: 20181123, end: 20181123
  34. MEMOTROPIL [Suspect]
     Active Substance: PIRACETAM
     Indication: PRODUCT USED FOR UNKNOWN INDICATION
     Dosage: 2.4 GRAM, QD
     Route: 042
     Dates: start: 20181024, end: 20181115
  35. LEVONOR                            /00127502/ [Suspect]
     Active Substance: NOREPINEPHRINE BITARTRATE
     Dosage: 1.4 MILLIGRAM, QH
     Route: 042
     Dates: start: 20181124, end: 20181125
  36. VANCOMYCIN [Suspect]
     Active Substance: VANCOMYCIN
     Dosage: 1 GRAM, QD
     Route: 048
     Dates: start: 20181028, end: 20181109
  37. OXYNORM [Concomitant]
     Active Substance: OXYCODONE HYDROCHLORIDE
     Dosage: 2 MILLIGRAM, QH
     Route: 042
     Dates: start: 20181115, end: 20181120
  38. SODIUM BICARBONATE. [Concomitant]
     Active Substance: SODIUM BICARBONATE
     Dosage: 100 MILLIGRAM
     Route: 042
     Dates: start: 20181115, end: 20181118
  39. CORDARONE [Concomitant]
     Active Substance: AMIODARONE HYDROCHLORIDE
     Dosage: 900 MILLIGRAM, QD
     Route: 041
     Dates: start: 20181115, end: 20181118
  40. FUROSEMID                          /00032601/ [Concomitant]
     Active Substance: FUROSEMIDE
     Dosage: 5 MILLIGRAM, QH
     Route: 042
     Dates: start: 20181013, end: 20181023
  41. MEROPENEM. [Concomitant]
     Active Substance: MEROPENEM
     Dosage: DOSE: 3G/DAY/300 ML
     Route: 042
     Dates: start: 20181014, end: 20181020
  42. VANCOMYCIN [Suspect]
     Active Substance: VANCOMYCIN
     Indication: PROTEUS INFECTION
     Dosage: UNK
     Route: 042
     Dates: start: 20181015, end: 20181021
  43. VANCOMYCIN [Suspect]
     Active Substance: VANCOMYCIN
     Indication: SERRATIA INFECTION
     Dosage: 2 GRAM, QD
     Route: 042
     Dates: start: 20181124, end: 20181125
  44. GLUCOSE [Suspect]
     Active Substance: DEXTROSE
     Dosage: 500 MILLILITER, Q2D
     Route: 042
     Dates: start: 20181116, end: 20181116
  45. IMIPENEM/CILASTATIN KABI           /00820501/ [Suspect]
     Active Substance: CILASTATIN SODIUM\IMIPENEM
     Indication: NOSOCOMIAL INFECTION
     Dosage: 4 GRAM, QD
     Route: 042
     Dates: start: 20181117, end: 20181125
  46. KWETAPLEX [Concomitant]
     Active Substance: QUETIAPINE FUMARATE
     Dosage: 50 MILLIGRAM, QD
     Route: 048
     Dates: start: 20181017, end: 20181101
  47. PYRALGIN                           /03155201/ [Concomitant]
     Active Substance: METAMIZOLE\NIMESULIDE
     Dosage: 2.5 MG/100 ML, (IF NECESSARY)
     Route: 042
     Dates: start: 20181101
  48. GENSULIN R [Suspect]
     Active Substance: INSULIN HUMAN
     Dosage: 56 INTERNATIONAL UNIT, QD (2,7 AM TILL 7 PM 13 HOURS PLUS TWO TIMES 15 UNITS)
     Route: 042
     Dates: start: 20181124, end: 20181124
  49. LEVONOR                            /00127502/ [Suspect]
     Active Substance: NOREPINEPHRINE BITARTRATE
     Dosage: 4 MILLIGRAM, QH
     Route: 042
     Dates: start: 20181116, end: 20181117
  50. LEVONOR                            /00127502/ [Suspect]
     Active Substance: NOREPINEPHRINE BITARTRATE
     Dosage: 1.7 MILLIGRAM, QH
     Route: 042
     Dates: start: 20181120, end: 20181123
  51. VANCOMYCIN [Suspect]
     Active Substance: VANCOMYCIN
     Indication: STENOTROPHOMONAS INFECTION
  52. GENSULIN R [Suspect]
     Active Substance: INSULIN HUMAN
     Dosage: 15 INTERNATIONAL UNIT, QD
     Route: 042
     Dates: start: 20181117, end: 20181117
  53. GENSULIN R [Suspect]
     Active Substance: INSULIN HUMAN
     Dosage: 20 INTERNATIONAL UNIT, QD
     Route: 042
     Dates: start: 20181122, end: 20181122
  54. GENSULIN R [Suspect]
     Active Substance: INSULIN HUMAN
     Dosage: 15 INTERNATIONAL UNIT, QD, INFUSION OF INSULIN WAS CONTINUED
     Route: 042
     Dates: start: 20181125, end: 20181125
  55. CORHYDRON                          /00028601/ [Concomitant]
     Dosage: 400 MILLIGRAM, QD
     Route: 042
     Dates: start: 20181116, end: 20181121
  56. COSMOFER [Concomitant]
     Active Substance: IRON DEXTRAN
     Dosage: DOSE: 1G/100 ML
     Route: 042
     Dates: start: 20181017, end: 20181019

REACTIONS (35)
  - Hypoglycaemia [Fatal]
  - Loss of consciousness [Fatal]
  - Hypochromasia [Fatal]
  - Oliguria [Fatal]
  - Anisocytosis [Fatal]
  - Liver injury [Fatal]
  - Haemoglobin decreased [Fatal]
  - Overdose [Unknown]
  - Acidosis [Fatal]
  - Blood urea increased [Fatal]
  - Splenic injury [Fatal]
  - Thrombocytopenia [Fatal]
  - Renal injury [Fatal]
  - Central nervous system injury [Fatal]
  - Chromaturia [Fatal]
  - Tachycardia [Fatal]
  - Blood creatinine increased [Fatal]
  - Hyperkalaemia [Fatal]
  - Blood bilirubin increased [Fatal]
  - Heart rate increased [Fatal]
  - Hyperchloraemia [Fatal]
  - Creatinine renal clearance decreased [Fatal]
  - Bradycardia [Fatal]
  - Hyperaemia [Fatal]
  - Hypoxia [Fatal]
  - Blood pressure decreased [Fatal]
  - Tachyarrhythmia [Fatal]
  - Drug level above therapeutic [Fatal]
  - Red blood cell count decreased [Fatal]
  - Macrocytosis [Fatal]
  - Prescribed overdose [Fatal]
  - Petechiae [Fatal]
  - Haemolytic anaemia [Fatal]
  - Hepatitis fulminant [Fatal]
  - Hypotonia [Fatal]

NARRATIVE: CASE EVENT DATE: 20181017
